FAERS Safety Report 5586150-5 (Version None)
Quarter: 2008Q1

REPORT INFORMATION
  Report Type: 
  Country: None (occurrence: None)
  Receive Date: 20080104
  Receipt Date: 20071220
  Transmission Date: 20080703
  Serious: Yes (Other)
  Sender: FDA-Public Use
  Company Number: 2007S1013695

PATIENT
  Sex: Female

DRUGS (1)
  1. TAMOXIFEN MERCK NM (TAMOXIFEN CITRATE) [Suspect]
     Indication: BREAST CANCER
     Dosage: 20 MG; ORAL
     Route: 048
     Dates: start: 20071021

REACTIONS (1)
  - BLOOD POTASSIUM INCREASED [None]
